FAERS Safety Report 12636940 (Version 1)
Quarter: 2016Q3

REPORT INFORMATION
  Report Type: Report from Study
  Country: US (occurrence: US)
  Receive Date: 20160809
  Receipt Date: 20160809
  Transmission Date: 20161109
  Serious: Yes (Other)
  Sender: FDA-Public Use
  Company Number: US-ABBVIE-16K-163-1696444-00

PATIENT
  Sex: Female

DRUGS (3)
  1. HUMIRA [Suspect]
     Active Substance: ADALIMUMAB
     Route: 058
     Dates: start: 201411
  2. HUMIRA [Suspect]
     Active Substance: ADALIMUMAB
     Indication: CROHN^S DISEASE
     Route: 058
     Dates: start: 2008, end: 201407
  3. PROGESTERONE. [Concomitant]
     Active Substance: PROGESTERONE
     Indication: PRODUCT USED FOR UNKNOWN INDICATION

REACTIONS (7)
  - Haemorrhage in pregnancy [Unknown]
  - Progesterone decreased [Unknown]
  - Foetal death [Unknown]
  - Exposure during pregnancy [Unknown]
  - Muscle spasms [Unknown]
  - Abortion spontaneous [Recovered/Resolved]
  - Human chorionic gonadotropin abnormal [Unknown]

NARRATIVE: CASE EVENT DATE: 2016
